FAERS Safety Report 13766042 (Version 1)
Quarter: 2017Q3

REPORT INFORMATION
  Report Type: Report from Study
  Country: CO (occurrence: CO)
  Receive Date: 20170718
  Receipt Date: 20170718
  Transmission Date: 20171127
  Serious: Yes (Death, Hospitalization, Other)
  Sender: FDA-Public Use
  Company Number: PHHY2017CO079063

PATIENT
  Age: 54 Year
  Sex: Female
  Weight: 45 kg

DRUGS (3)
  1. FOLIC ACID. [Concomitant]
     Active Substance: FOLIC ACID
     Indication: PRODUCT USED FOR UNKNOWN INDICATION
     Route: 065
  2. AFINITOR [Suspect]
     Active Substance: EVEROLIMUS
     Indication: BREAST CANCER
     Dosage: 5 MG, QD
     Route: 048
     Dates: start: 20161209
  3. EXEMESTANE. [Concomitant]
     Active Substance: EXEMESTANE
     Indication: PRODUCT USED FOR UNKNOWN INDICATION
     Route: 065

REACTIONS (10)
  - Death [Fatal]
  - Syncope [Unknown]
  - Metastases to central nervous system [Unknown]
  - Dizziness [Unknown]
  - Malaise [Unknown]
  - Asthenia [Unknown]
  - Metastases to liver [Unknown]
  - Eating disorder [Unknown]
  - Somnolence [Unknown]
  - Decreased appetite [Unknown]

NARRATIVE: CASE EVENT DATE: 20170504
